FAERS Safety Report 4660941-7 (Version None)
Quarter: 2005Q2

REPORT INFORMATION
  Report Type: 
  Country: None (occurrence: None)
  Receive Date: 20050511
  Receipt Date: 20050210
  Transmission Date: 20051028
  Serious: Yes (Other)
  Sender: FDA-Public Use
  Company Number: 2004115232

PATIENT
  Age: 49 Year
  Sex: Male

DRUGS (3)
  1. NORVASC [Suspect]
     Indication: HYPERTENSION
     Dosage: (2.5 MG), ORAL (SEE IMAGE)
     Route: 048
     Dates: start: 20040924, end: 20041118
  2. HYDROCHLOROTHIAZIDE [Concomitant]
  3. COTYLENOL (CHLORPHENAMINE MALEATE, DEXTROMETHORHAN HYDROBROMIDE, PARAC [Concomitant]

REACTIONS (1)
  - BLOOD PRESSURE INCREASED [None]
